FAERS Safety Report 5897292-9 (Version None)
Quarter: 2008Q3

REPORT INFORMATION
  Report Type: 
  Country: None (occurrence: None)
  Receive Date: 20080924
  Receipt Date: 20080924
  Transmission Date: 20090109
  Serious: No
  Sender: FDA-Public Use
  Company Number: None

PATIENT
  Age: 59 Year
  Sex: Female
  Weight: 100.2449 kg

DRUGS (2)
  1. METOPROLOL SUCCINATE EXTENDED RELEASE [Suspect]
     Indication: HYPERTENSION
     Dosage: 1 TABLET 1 AT BEDTIME PO
     Route: 048
     Dates: start: 20080729, end: 20080923
  2. SYNAX--SR  0.375MG  CAPELLON PHAR [Suspect]
     Indication: IRRITABLE BOWEL SYNDROME
     Dosage: 1 TABLET  2 TIMES DAY PO
     Route: 048
     Dates: start: 20080729, end: 20080915

REACTIONS (3)
  - BLOOD PRESSURE INCREASED [None]
  - CONDITION AGGRAVATED [None]
  - THERAPEUTIC RESPONSE UNEXPECTED WITH DRUG SUBSTITUTION [None]
